FAERS Safety Report 23340124 (Version 2)
Quarter: 2024Q1

REPORT INFORMATION
  Report Type: Spontaneous
  Country: US (occurrence: US)
  Receive Date: 20231227
  Receipt Date: 20240307
  Transmission Date: 20240410
  Serious: Yes (Disabling, Other)
  Sender: FDA-Public Use
  Company Number: US-CELLTRION INC.-2023US024395

PATIENT

DRUGS (5)
  1. INFLECTRA [Suspect]
     Active Substance: INFLIXIMAB-DYYB
     Indication: Colitis ulcerative
     Dosage: THREE LITTLE VIALS, UNKNOWN DOSE AND RECEIVED IT EVERY 8 WEEKS
     Route: 042
     Dates: start: 20221113, end: 20230731
  2. LIALDA [Concomitant]
     Active Substance: MESALAMINE
     Indication: Colitis ulcerative
     Dosage: 1.2 GRAM PER TABLET, FOUR A DAY ORALLY FOR FOUR PILLS A DAY
     Route: 048
  3. VITAMIN D3 [Concomitant]
     Active Substance: CHOLECALCIFEROL
     Indication: Colitis ulcerative
     Dosage: START DATE: YEARS
     Route: 048
  4. PREBIOTICS NOS;PROBIOTICS NOS [Concomitant]
     Indication: Colitis ulcerative
     Dosage: START DATE: YEARS
     Route: 048
  5. OMEPRAZOLE [Concomitant]
     Active Substance: OMEPRAZOLE
     Indication: Gastrooesophageal reflux disease
     Dosage: START DATE: YEARS
     Route: 048

REACTIONS (6)
  - Bone pain [Recovered/Resolved]
  - Myalgia [Recovered/Resolved]
  - Lupus-like syndrome [Unknown]
  - Condition aggravated [Recovering/Resolving]
  - Drug ineffective [Recovering/Resolving]
  - Pain [Unknown]

NARRATIVE: CASE EVENT DATE: 20221115
